FAERS Safety Report 14080906 (Version 1)
Quarter: 2017Q4

REPORT INFORMATION
  Report Type: Spontaneous
  Country: FR (occurrence: FR)
  Receive Date: 20171012
  Receipt Date: 20171012
  Transmission Date: 20180321
  Serious: Yes (Hospitalization, Disabling, Other)
  Sender: FDA-Public Use
  Company Number: FR-ELI_LILLY_AND_COMPANY-FR201710001305

PATIENT
  Age: 61 Year
  Sex: Male

DRUGS (4)
  1. GEMZAR [Suspect]
     Active Substance: GEMCITABINE HYDROCHLORIDE
     Indication: CHOLANGIOCARCINOMA
     Dosage: UNK UNK, CYCLICAL
     Route: 042
     Dates: start: 20150219, end: 201505
  2. CISPLATIN. [Suspect]
     Active Substance: CISPLATIN
     Dosage: UNK UNK, CYCLICAL
     Route: 042
     Dates: start: 20151009, end: 20151019
  3. CISPLATIN. [Suspect]
     Active Substance: CISPLATIN
     Indication: CHOLANGIOCARCINOMA
     Dosage: UNK UNK, CYCLICAL
     Route: 042
     Dates: start: 20150219, end: 201505
  4. GEMZAR [Suspect]
     Active Substance: GEMCITABINE HYDROCHLORIDE
     Dosage: UNK UNK, CYCLICAL
     Route: 042
     Dates: start: 20151009, end: 20151019

REACTIONS (7)
  - Congestive cardiomyopathy [Not Recovered/Not Resolved]
  - Atrial fibrillation [Unknown]
  - Ejection fraction decreased [Not Recovered/Not Resolved]
  - Acute kidney injury [Unknown]
  - Sepsis [Recovered/Resolved]
  - Febrile bone marrow aplasia [Recovered/Resolved]
  - Off label use [Recovered/Resolved]

NARRATIVE: CASE EVENT DATE: 20150219
